FAERS Safety Report 5098982-0 (Version None)
Quarter: 2006Q3

REPORT INFORMATION
  Report Type: 
  Country: None (occurrence: None)
  Receive Date: 20060907
  Receipt Date: 20060809
  Transmission Date: 20061208
  Serious: Yes (Other)
  Sender: FDA-Public Use
  Company Number: GB-BOEHRINGER INGELHEIM PHARMACEUTICALS, INC.-2006-UK-03492UK

PATIENT
  Sex: Female

DRUGS (5)
  1. VIRAMUNE [Suspect]
     Route: 048
     Dates: start: 20060524
  2. COMBIVIR [Concomitant]
     Route: 048
     Dates: start: 20060524
  3. CO-TRIMOXAZOLE [Concomitant]
     Indication: PROPHYLAXIS
     Route: 048
     Dates: start: 20060407, end: 20060620
  4. FERROUS SULFATE TAB [Concomitant]
     Indication: ANAEMIA
     Route: 048
     Dates: start: 20060606, end: 20060620
  5. FLUCONAZOLE [Concomitant]
     Indication: ORAL CANDIDIASIS
     Route: 048
     Dates: start: 20060420, end: 20060620

REACTIONS (4)
  - HYPERSENSITIVITY [None]
  - RASH ERYTHEMATOUS [None]
  - RASH PAPULAR [None]
  - SKIN DISCOLOURATION [None]
